FAERS Safety Report 14744947 (Version 3)
Quarter: 2019Q3

REPORT INFORMATION
  Report Type: Spontaneous
  Country: US (occurrence: US)
  Receive Date: 20180411
  Receipt Date: 20190805
  Transmission Date: 20191004
  Serious: Yes (Hospitalization)
  Sender: FDA-Public Use
  Company Number: US-PFIZER INC-2018145042

PATIENT
  Age: 69 Year
  Sex: Female
  Weight: 90.71 kg

DRUGS (2)
  1. XELJANZ XR [Suspect]
     Active Substance: TOFACITINIB CITRATE
     Indication: RHEUMATOID ARTHRITIS
     Dosage: 11 MG, UNK
  2. CELECOXIB. [Concomitant]
     Active Substance: CELECOXIB
     Dosage: UNK
     Dates: start: 20190618

REACTIONS (1)
  - Drug ineffective [Not Recovered/Not Resolved]
